FAERS Safety Report 11117874 (Version 7)
Quarter: 2016Q2

REPORT INFORMATION
  Report Type: Report from Study
  Country: US (occurrence: US)
  Receive Date: 20150518
  Receipt Date: 20160509
  Transmission Date: 20160815
  Serious: Yes (Death, Hospitalization)
  Sender: FDA-Public Use
  Company Number: US-ROCHE-1574499

PATIENT
  Age: 58 Year
  Sex: Male
  Weight: 60.47 kg

DRUGS (11)
  1. NORVASC [Concomitant]
     Active Substance: AMLODIPINE BESYLATE
     Route: 048
     Dates: start: 20120419
  2. METOPROLOL TARTRATE. [Concomitant]
     Active Substance: METOPROLOL TARTRATE
     Route: 065
     Dates: start: 20120419
  3. 5-FLUOROURACIL [Suspect]
     Active Substance: FLUOROURACIL
     Indication: COLORECTAL CANCER METASTATIC
     Dosage: DATE OF LAST DOSE PRIOR TO SAE: 27/APR/2015. BOLUS.
     Route: 040
     Dates: start: 20131203
  4. 5-FLUOROURACIL [Suspect]
     Active Substance: FLUOROURACIL
     Dosage: DATE OF LAST DOSE PRIOR TO SAE: 27/APR/2015
     Route: 042
     Dates: start: 20131203
  5. VITAMIN D3 [Concomitant]
     Active Substance: CHOLECALCIFEROL
     Route: 065
     Dates: start: 20150302
  6. IMODIUM [Concomitant]
     Active Substance: LOPERAMIDE HYDROCHLORIDE
     Route: 048
     Dates: start: 2012
  7. OXALIPLATIN. [Suspect]
     Active Substance: OXALIPLATIN
     Indication: COLORECTAL CANCER METASTATIC
     Dosage: DATE OF LAST DOSE PRIOR TO SAE: 10/MAR/2014.
     Route: 042
     Dates: start: 20131203
  8. CALCIUM FOLINATE [Suspect]
     Active Substance: LEUCOVORIN CALCIUM
     Indication: COLORECTAL CANCER METASTATIC
     Dosage: DATE OF LAST DOSE PRIOR TO SAE: 27/APR/2015.
     Route: 042
     Dates: start: 20131203
  9. BEVACIZUMAB [Suspect]
     Active Substance: BEVACIZUMAB
     Indication: COLORECTAL CANCER METASTATIC
     Dosage: DATE OF LAST DOSE PRIOR TO SAE: 27/APR/2015. DOSE: 5 MG/KG
     Route: 042
     Dates: start: 20131203
  10. VITAMIN D2 [Concomitant]
     Active Substance: ERGOCALCIFEROL
     Dosage: DOSE 50000 UNITS
     Route: 065
     Dates: start: 20150302
  11. CLARITIN [Concomitant]
     Active Substance: LORATADINE
     Dosage: PRN
     Route: 065
     Dates: start: 20150119

REACTIONS (5)
  - Subcutaneous abscess [Fatal]
  - Hypotension [Fatal]
  - Pelvic abscess [Fatal]
  - Lactic acidosis [Fatal]
  - Sepsis [Fatal]

NARRATIVE: CASE EVENT DATE: 20150428
